FAERS Safety Report 25101792 (Version 1)
Quarter: 2025Q1

REPORT INFORMATION
  Report Type: Spontaneous
  Country: KR (occurrence: KR)
  Receive Date: 20250320
  Receipt Date: 20250320
  Transmission Date: 20250409
  Serious: Yes (Death, Other)
  Sender: PFIZER
  Company Number: KR-PFIZER INC-202500059675

PATIENT
  Age: 70 Year
  Sex: Male

DRUGS (2)
  1. VINCRISTINE SULFATE [Suspect]
     Active Substance: VINCRISTINE SULFATE
     Indication: B-cell lymphoma
     Dosage: 2 MG, 1X/DAY
     Dates: start: 20220624, end: 20220813
  2. DAUNORUBICIN HYDROCHLORIDE [Suspect]
     Active Substance: DAUNORUBICIN HYDROCHLORIDE
     Indication: B-cell lymphoma
     Dosage: 71 MG, 1X/DAY
     Dates: start: 20220624, end: 20220626

REACTIONS (3)
  - Gastrointestinal haemorrhage [Fatal]
  - Hypotension [Fatal]
  - Neutropenia [Fatal]

NARRATIVE: CASE EVENT DATE: 20220823
